FAERS Safety Report 7978860-7 (Version None)
Quarter: 2011Q4

REPORT INFORMATION
  Report Type: 
  Country: None (occurrence: None)
  Receive Date: 20111214
  Receipt Date: 20111208
  Transmission Date: 20120403
  Serious: No
  Sender: FDA-Public Use
  Company Number: US-B.I. PHARMACEUTICALS,INC./RIDGEFIELD-2011-BP-27781BP

PATIENT
  Age: 73 Year
  Sex: Male

DRUGS (1)
  1. FLOMAX [Suspect]

REACTIONS (1)
  - DRUG INEFFECTIVE [None]
